FAERS Safety Report 10731033 (Version 2)
Quarter: 2015Q1

REPORT INFORMATION
  Report Type: Spontaneous
  Country: US (occurrence: US)
  Receive Date: 20150122
  Receipt Date: 20150210
  Transmission Date: 20150721
  Serious: No
  Sender: FDA-Public Use
  Company Number: US-PFIZER INC-2015020592

PATIENT
  Age: 63 Year
  Sex: Female
  Weight: 59 kg

DRUGS (9)
  1. NEURONTIN [Interacting]
     Active Substance: GABAPENTIN
     Indication: NEURALGIA
  2. GABAPENTIN. [Interacting]
     Active Substance: GABAPENTIN
     Dosage: 300 MG, UNK
  3. OXYCONTIN [Interacting]
     Active Substance: OXYCODONE HYDROCHLORIDE
     Dosage: UNK
  4. TOPIRAMATE. [Interacting]
     Active Substance: TOPIRAMATE
     Indication: MIGRAINE
     Dosage: 100 MG, 2X/DAY
  5. ESCITALOPRAM [Concomitant]
     Active Substance: ESCITALOPRAM OXALATE
     Dosage: UNK
  6. NEURONTIN [Suspect]
     Active Substance: GABAPENTIN
     Indication: SKIN BURNING SENSATION
     Dosage: 1 DF, 2X/DAY
     Dates: start: 20150114
  7. ALLEGRA [Concomitant]
     Active Substance: FEXOFENADINE HYDROCHLORIDE
     Indication: DRUG HYPERSENSITIVITY
     Dosage: 60 MG, UNK
  8. METOPROLOL [Concomitant]
     Active Substance: METOPROLOL
     Indication: MITRAL VALVE PROLAPSE
     Dosage: 50 MG, 2X/DAY
  9. HYDROXYZINE [Concomitant]
     Active Substance: HYDROXYZINE\HYDROXYZINE HYDROCHLORIDE
     Indication: MITRAL VALVE PROLAPSE
     Dosage: 30 MG, UNK

REACTIONS (8)
  - Dizziness [Recovered/Resolved]
  - Feeling drunk [Recovered/Resolved]
  - Movement disorder [Recovered/Resolved]
  - Activities of daily living impaired [Unknown]
  - Drug interaction [Recovered/Resolved]
  - Product use issue [Unknown]
  - Vertigo [Recovered/Resolved]
  - Gait disturbance [Recovered/Resolved]

NARRATIVE: CASE EVENT DATE: 20150114
